FAERS Safety Report 10102769 (Version 1)
Quarter: 2014Q2

REPORT INFORMATION
  Report Type: Spontaneous
  Country: FR (occurrence: FR)
  Receive Date: 20140424
  Receipt Date: 20140424
  Transmission Date: 20141212
  Serious: Yes (Other)
  Sender: FDA-Public Use
  Company Number: FR-TEVA-476515ISR

PATIENT
  Sex: Female

DRUGS (1)
  1. METFORMINE TEVA 500 MG [Suspect]
     Dosage: 1 TABLET DAILY; SINCE 1 YEAR
     Dates: start: 2013

REACTIONS (3)
  - Cardiac disorder [Unknown]
  - Abdominal pain [Unknown]
  - Feeling abnormal [Unknown]
